FAERS Safety Report 4910278-3 (Version None)
Quarter: 2006Q1

REPORT INFORMATION
  Report Type: 
  Country: None (occurrence: None)
  Receive Date: 20060213
  Receipt Date: 20060126
  Transmission Date: 20060701
  Serious: Yes (Life-Threatening, Hospitalization, Other)
  Sender: FDA-Public Use
  Company Number: US-MERCK-0601USA03272

PATIENT
  Age: 67 Year
  Sex: Male
  Weight: 98 kg

DRUGS (17)
  1. NOVOLOG [Concomitant]
     Route: 065
  2. ALDACTONE [Concomitant]
     Route: 065
     Dates: start: 20060111
  3. ALDACTONE [Concomitant]
     Route: 065
     Dates: end: 20060110
  4. ALLOPURINOL [Concomitant]
     Route: 048
  5. FEOSOL [Concomitant]
     Route: 065
  6. FUROSEMIDE [Concomitant]
     Route: 065
     Dates: start: 20060111
  7. FUROSEMIDE [Concomitant]
     Route: 065
     Dates: end: 20060110
  8. LANTUS [Concomitant]
     Route: 065
  9. LOTREL [Concomitant]
     Route: 065
  10. PLAVIX [Concomitant]
     Route: 065
  11. POTASSIUM (UNSPECIFIED) [Concomitant]
     Route: 065
  12. TOPROL-XL [Concomitant]
     Route: 065
  13. ZOCOR [Suspect]
     Indication: DYSLIPIDAEMIA
     Route: 048
     Dates: start: 20051207, end: 20060124
  14. ZOCOR [Suspect]
     Route: 048
     Dates: start: 20040810, end: 20051206
  15. CLONIDINE [Concomitant]
     Route: 065
  16. FOLIC ACID [Concomitant]
     Route: 065
  17. AVANDIA [Concomitant]
     Route: 065

REACTIONS (11)
  - BLOOD CREATINE PHOSPHOKINASE INCREASED [None]
  - BLOOD POTASSIUM INCREASED [None]
  - DRUG ADMINISTRATION ERROR [None]
  - HAEMOGLOBIN DECREASED [None]
  - HYPERPHOSPHATAEMIA [None]
  - HYPOTENSION [None]
  - MYALGIA [None]
  - OVERWEIGHT [None]
  - PAIN IN EXTREMITY [None]
  - RENAL FAILURE CHRONIC [None]
  - RENAL IMPAIRMENT [None]
